FAERS Safety Report 16980909 (Version 2)
Quarter: 2020Q1

REPORT INFORMATION
  Report Type: Spontaneous
  Country: US (occurrence: US)
  Receive Date: 20191031
  Receipt Date: 20200310
  Transmission Date: 20200409
  Serious: No
  Sender: FDA-Public Use
  Company Number: US-FARMAPROD-201909-1467

PATIENT
  Sex: Female

DRUGS (1)
  1. OXERVATE [Suspect]
     Active Substance: CENEGERMIN-BKBJ
     Indication: NEUROTROPHIC KERATOPATHY
     Route: 047

REACTIONS (7)
  - Photophobia [Unknown]
  - Vision blurred [Unknown]
  - Lacrimation increased [Unknown]
  - Eye swelling [Unknown]
  - Ocular discomfort [Unknown]
  - Product dose omission [Unknown]
  - Eye pain [Unknown]
